FAERS Safety Report 18840503 (Version 1)
Quarter: 2021Q1

REPORT INFORMATION
  Report Type: Spontaneous
  Country: FR (occurrence: FR)
  Receive Date: 20210204
  Receipt Date: 20210204
  Transmission Date: 20210419
  Serious: Yes (Hospitalization)
  Sender: FDA-Public Use
  Company Number: FR-SUN PHARMACEUTICAL INDUSTRIES LTD-2021RR-279092

PATIENT
  Age: 88 Year
  Sex: Female

DRUGS (2)
  1. TRAMADOL. [Suspect]
     Active Substance: TRAMADOL
     Indication: PAIN
     Dosage: 150 MILLIGRAM, UNK
     Route: 048
     Dates: start: 20201231
  2. COMIRNATY [Suspect]
     Active Substance: TOZINAMERAN
     Indication: PROPHYLAXIS
     Dosage: 1 DOSAGE FORM, UNK
     Route: 030
     Dates: start: 20210107

REACTIONS (2)
  - Depressed level of consciousness [Recovered/Resolved]
  - Bradycardia [Recovered/Resolved]

NARRATIVE: CASE EVENT DATE: 20210108
